FAERS Safety Report 8875544 (Version 1)
Quarter: 2012Q4

REPORT INFORMATION
  Report Type: 
  Country: US (occurrence: US)
  Receive Date: 20121023
  Receipt Date: 20121023
  Transmission Date: 20130627
  Serious: Yes (Congenital Anomaly)
  Sender: FDA-Public Use
  Company Number: US-JNJFOC-20121009832

PATIENT

DRUGS (1)
  1. TOPAMAX [Suspect]
     Indication: FOETAL EXPOSURE DURING PREGNANCY
     Route: 064
     Dates: start: 2002, end: 2003

REACTIONS (5)
  - Tethered cord syndrome [Unknown]
  - Congenital bladder anomaly [Unknown]
  - Congenital urethral anomaly [Unknown]
  - Congenital absence of vertebra [Unknown]
  - Bone development abnormal [Unknown]
